FAERS Safety Report 16056379 (Version 1)
Quarter: 2019Q1

REPORT INFORMATION
  Report Type: Report from Study
  Country: CO (occurrence: CO)
  Receive Date: 20190311
  Receipt Date: 20190311
  Transmission Date: 20190418
  Serious: Yes (Hospitalization, Other)
  Sender: FDA-Public Use
  Company Number: CO-ROCHE-1174668

PATIENT
  Age: 35 Year
  Sex: Male

DRUGS (1)
  1. CELLCEPT [Suspect]
     Active Substance: MYCOPHENOLATE MOFETIL\MYCOPHENOLATE MOFETIL HYDROCHLORIDE
     Indication: RENAL TRANSPLANT
     Route: 048
     Dates: start: 20120522

REACTIONS (5)
  - Varicella [Recovering/Resolving]
  - Influenza [Recovering/Resolving]
  - Lung disorder [Recovering/Resolving]
  - Pneumonia [Unknown]
  - Smallpox [Unknown]

NARRATIVE: CASE EVENT DATE: 20121220
